FAERS Safety Report 8470529-8 (Version None)
Quarter: 2012Q2

REPORT INFORMATION
  Report Type: 
  Country: None (occurrence: None)
  Receive Date: 20120627
  Receipt Date: 20120607
  Transmission Date: 20120825
  Serious: No
  Sender: FDA-Public Use
  Company Number: US-ASTRAZENECA-2011SE41552

PATIENT
  Age: 696 Month
  Sex: Female

DRUGS (18)
  1. ALPROLAZAM [Concomitant]
     Indication: ANXIETY
     Dates: start: 20090324
  2. LORTAB [Concomitant]
     Indication: PAIN
     Dosage: 5 TO 50 MG   ONE TIME ONLY
     Dates: start: 20090324
  3. NEXIUM [Suspect]
     Indication: GASTROOESOPHAGEAL REFLUX DISEASE
     Route: 048
     Dates: start: 20060101
  4. CLONIDINE [Concomitant]
     Indication: HYPERTENSION
     Dates: start: 20090324
  5. FUROSEMIDE [Concomitant]
     Dates: start: 20090324
  6. ROZEREM [Concomitant]
     Dates: start: 20090324
  7. DARVOCET-N 50 [Concomitant]
     Dosage: 100 TO 650 MG
     Dates: start: 20090324
  8. SERTRALINE HYDROCHLORIDE [Concomitant]
     Dates: start: 20090324
  9. CRESTOR [Concomitant]
     Dates: start: 20090324
  10. NEXIUM [Suspect]
     Route: 048
     Dates: start: 20090324
  11. CALCIUM CARBONATE [Concomitant]
  12. SPIRONOLACTONE [Concomitant]
     Dates: start: 20090324
  13. AMLODIPINE [Concomitant]
     Dates: start: 20090324
  14. COUMADIN [Concomitant]
     Dates: start: 20090324
  15. CELEBREX [Concomitant]
     Dates: start: 20090324
  16. PROTONIX [Concomitant]
  17. LEVOTHYROXINE [Concomitant]
     Dates: start: 20090324
  18. FLEXERIL [Concomitant]
     Dates: start: 20090324

REACTIONS (10)
  - FALL [None]
  - UPPER LIMB FRACTURE [None]
  - ANXIETY [None]
  - CERVICAL VERTEBRAL FRACTURE [None]
  - TIBIA FRACTURE [None]
  - DEPRESSION [None]
  - ARTHRALGIA [None]
  - OSTEOPOROSIS [None]
  - NIGHTMARE [None]
  - COMPRESSION FRACTURE [None]
